FAERS Safety Report 6449933-5 (Version None)
Quarter: 2009Q4

REPORT INFORMATION
  Report Type: 
  Country: None (occurrence: None)
  Receive Date: 20091123
  Receipt Date: 20091117
  Transmission Date: 20100525
  Serious: Yes (Other)
  Sender: FDA-Public Use
  Company Number: NL-BIOGENIDEC-2009BI037504

PATIENT
  Age: 35 Year
  Sex: Female
  Weight: 174 kg

DRUGS (7)
  1. TYSABRI [Suspect]
     Indication: MULTIPLE SCLEROSIS
     Route: 042
     Dates: start: 20070720
  2. CREMOR TRIAMCINOLONI ACETONIDI [Concomitant]
     Indication: ECZEMA
     Dates: start: 20070101
  3. ALDOMET [Concomitant]
     Indication: PREGNANCY INDUCED HYPERTENSION
     Dates: start: 20090818, end: 20090823
  4. ALDOMET [Concomitant]
     Dates: start: 20090823, end: 20090827
  5. FINIMAL [Concomitant]
     Indication: HEADACHE
     Dates: start: 20090816
  6. FOLIUMZUUR SANDOZ (FOLIC ACID) [Concomitant]
     Dates: start: 20081117, end: 20091001
  7. GYNO DAKTARIN VAGINAALCREME [Concomitant]
     Indication: VAGINAL DISCHARGE

REACTIONS (1)
  - PUERPERAL PYREXIA [None]
